FAERS Safety Report 7399553-3 (Version None)
Quarter: 2011Q2

REPORT INFORMATION
  Report Type: 
  Country: None (occurrence: None)
  Receive Date: 20110407
  Receipt Date: 20101019
  Transmission Date: 20111010
  Serious: Yes (Hospitalization)
  Sender: FDA-Public Use
  Company Number: US-BAYER-201028379NA

PATIENT
  Sex: Female
  Weight: 77.098 kg

DRUGS (16)
  1. YASMIN [Suspect]
  2. ANTIBIOTICS [Concomitant]
  3. OCELLA [Suspect]
     Indication: CONTRACEPTION
     Route: 048
     Dates: start: 20090401, end: 20090601
  4. YAZ [Suspect]
     Indication: CONTRACEPTION
     Dosage: UNK
     Dates: start: 20080101, end: 20090901
  5. YASMIN [Suspect]
     Indication: PREMENSTRUAL SYNDROME
     Dosage: UNK
     Dates: start: 20080101, end: 20090901
  6. OCELLA [Suspect]
  7. OCELLA [Suspect]
     Indication: PREMENSTRUAL SYNDROME
  8. YASMIN [Suspect]
     Indication: CONTRACEPTION
  9. NSAID'S [Concomitant]
  10. ASACOL [Concomitant]
     Indication: COLITIS
     Dosage: UNK
     Dates: start: 19980101, end: 20080101
  11. CEPHALEXIN [Concomitant]
  12. DICYCLOMINE [Concomitant]
  13. YAZ [Suspect]
     Indication: PREMENSTRUAL SYNDROME
  14. WELLBUTRIN [Concomitant]
     Indication: DEPRESSION
     Dosage: UNK
     Dates: start: 20090201, end: 20100301
  15. CLOBETASOL PROPIONATE [Concomitant]
  16. ASCORBIC ACID [Concomitant]

REACTIONS (4)
  - CHOLELITHIASIS [None]
  - GALLBLADDER INJURY [None]
  - EMOTIONAL DISTRESS [None]
  - PAIN [None]
